FAERS Safety Report 10641187 (Version 3)
Quarter: 2016Q3

REPORT INFORMATION
  Report Type: Report from Study
  Country: US (occurrence: US)
  Receive Date: 20141209
  Receipt Date: 20160923
  Transmission Date: 20161109
  Serious: No
  Sender: FDA-Public Use
  Company Number: US-GILEAD-2014-0125585

PATIENT
  Age: 70 Year
  Sex: Female

DRUGS (1)
  1. AMBRISENTAN [Suspect]
     Active Substance: AMBRISENTAN
     Indication: PRODUCT USED FOR UNKNOWN INDICATION
     Dosage: 10 MG, QD
     Route: 065
     Dates: start: 20121025

REACTIONS (6)
  - Malaise [Not Recovered/Not Resolved]
  - Hypertension [Unknown]
  - Unevaluable event [Not Recovered/Not Resolved]
  - Blood pressure decreased [Unknown]
  - Blood pressure inadequately controlled [Unknown]
  - Presyncope [Unknown]

NARRATIVE: CASE EVENT DATE: 201609
